FAERS Safety Report 6525469-8 (Version None)
Quarter: 2010Q1

REPORT INFORMATION
  Report Type: 
  Country: None (occurrence: None)
  Receive Date: 20100104
  Receipt Date: 20091223
  Transmission Date: 20100710
  Serious: Yes (Hospitalization, Other)
  Sender: FDA-Public Use
  Company Number: US-ELI_LILLY_AND_COMPANY-US200912005485

PATIENT
  Sex: Female

DRUGS (5)
  1. FORTEO [Suspect]
     Indication: OSTEOPOROSIS
     Dosage: ONE INJECTION, DAILY
     Dates: start: 20090401
  2. LEXAPRO [Concomitant]
  3. XANAX [Concomitant]
  4. PHENERGAN HCL [Concomitant]
  5. OXYCODONE [Concomitant]

REACTIONS (7)
  - BLOOD PRESSURE INCREASED [None]
  - FEELING ABNORMAL [None]
  - MASS [None]
  - MEMORY IMPAIRMENT [None]
  - MUSCLE SPASMS [None]
  - PAIN [None]
  - PAIN IN JAW [None]
